FAERS Safety Report 13159906 (Version 1)
Quarter: 2017Q1

REPORT INFORMATION
  Report Type: Spontaneous
  Country: AT (occurrence: AT)
  Receive Date: 20170127
  Receipt Date: 20170127
  Transmission Date: 20170428
  Serious: Yes (Other)
  Sender: FDA-Public Use
  Company Number: AT-BAYER-2017-010426

PATIENT

DRUGS (3)
  1. STIVARGA [Suspect]
     Active Substance: REGORAFENIB
     Indication: HEPATOCELLULAR CARCINOMA
     Dosage: UNK
     Dates: start: 201504, end: 201505
  2. RADIOTHERAPY [Concomitant]
     Active Substance: RADIATION THERAPY
     Indication: METASTASES TO SPINE
  3. XGEVA [Suspect]
     Active Substance: DENOSUMAB
     Indication: METASTASES TO SPINE
     Dosage: UNK
     Dates: start: 201407, end: 201505

REACTIONS (4)
  - Osteonecrosis of jaw [None]
  - Weight decreased [None]
  - Fatigue [None]
  - Palmar-plantar erythrodysaesthesia syndrome [None]
